FAERS Safety Report 18283384 (Version 1)
Quarter: 2020Q3

REPORT INFORMATION
  Report Type: Spontaneous
  Country: US (occurrence: US)
  Receive Date: 20200918
  Receipt Date: 20200918
  Transmission Date: 20201103
  Serious: Yes (Hospitalization)
  Sender: FDA-Public Use
  Company Number: US-AMNEAL PHARMACEUTICALS-2020-AMRX-02772

PATIENT
  Age: 12 Year
  Sex: Female

DRUGS (1)
  1. BOSENTAN. [Suspect]
     Active Substance: BOSENTAN
     Indication: PRODUCT USED FOR UNKNOWN INDICATION
     Dosage: UNK
     Route: 065

REACTIONS (5)
  - Catheterisation cardiac [Unknown]
  - Biopsy liver [Unknown]
  - Cranioplasty [Unknown]
  - Medical device removal [Unknown]
  - Surgery [Unknown]

NARRATIVE: CASE EVENT DATE: 20200824
